FAERS Safety Report 5050969-X (Version None)
Quarter: 2006Q3

REPORT INFORMATION
  Report Type: 
  Country: None (occurrence: None)
  Receive Date: 20060710
  Receipt Date: 20060628
  Transmission Date: 20061208
  Serious: Yes (Hospitalization)
  Sender: FDA-Public Use
  Company Number: 2006082773

PATIENT
  Age: 58 Year
  Sex: Male
  Weight: 102.0593 kg

DRUGS (1)
  1. CELEBREX [Suspect]
     Indication: KNEE OPERATION
     Dosage: 400 MG (200 MG, 2 IN 1 D),
     Dates: start: 20000101

REACTIONS (5)
  - CEREBRAL INFARCTION [None]
  - DEPRESSION [None]
  - DISTURBANCE IN ATTENTION [None]
  - HYPERTENSION [None]
  - INSOMNIA [None]
